FAERS Safety Report 13129387 (Version 1)
Quarter: 2017Q1

REPORT INFORMATION
  Report Type: Spontaneous
  Country: US (occurrence: US)
  Receive Date: 20170118
  Receipt Date: 20170118
  Transmission Date: 20170428
  Serious: Yes (Other)
  Sender: FDA-Public Use
  Company Number: None

PATIENT
  Age: 46 Year
  Sex: Female
  Weight: 51.3 kg

DRUGS (1)
  1. GADAVIST [Suspect]
     Active Substance: GADOBUTROL
     Indication: BREAST CANCER
     Route: 042
     Dates: start: 20161028

REACTIONS (3)
  - Pruritus [None]
  - Throat irritation [None]
  - Contrast media reaction [None]

NARRATIVE: CASE EVENT DATE: 20161028
